FAERS Safety Report 4948500-X (Version None)
Quarter: 2006Q1

REPORT INFORMATION
  Report Type: 
  Country: None (occurrence: None)
  Receive Date: 20060320
  Receipt Date: 20050930
  Transmission Date: 20060701
  Serious: Yes (Hospitalization, Other)
  Sender: FDA-Public Use
  Company Number: US-MERCK-0510USA01328

PATIENT
  Age: 76 Year
  Sex: Female

DRUGS (8)
  1. VIOXX [Suspect]
     Route: 048
     Dates: start: 19990501, end: 20010321
  2. VIOXX [Suspect]
     Route: 048
     Dates: end: 20020101
  3. NORVASC [Concomitant]
     Route: 065
  4. METOPROLOL [Concomitant]
     Route: 065
  5. NITROGLYCERIN [Concomitant]
     Route: 065
  6. LASIX [Concomitant]
     Route: 065
  7. HYDROCODONE BITARTRATE [Concomitant]
     Indication: PAIN
     Route: 065
  8. MECLIZINE [Concomitant]
     Route: 065

REACTIONS (20)
  - ABDOMINAL DISTENSION [None]
  - ARTHRITIS [None]
  - ARTHROPATHY [None]
  - BACK PAIN [None]
  - CARDIAC DISORDER [None]
  - CARDIOVASCULAR DISORDER [None]
  - CHEST PAIN [None]
  - CORONARY ARTERY DISEASE [None]
  - DYSPNOEA [None]
  - HEADACHE [None]
  - HYPERTENSION [None]
  - LIVER DISORDER [None]
  - MYOCARDIAL INFARCTION [None]
  - OEDEMA [None]
  - OEDEMA PERIPHERAL [None]
  - PEPTIC ULCER [None]
  - RENAL DISORDER [None]
  - SINUS ARRHYTHMIA [None]
  - SINUS BRADYCARDIA [None]
  - VENTRICULAR HYPERTROPHY [None]
